FAERS Safety Report 9936443 (Version 1)
Quarter: 2014Q1

REPORT INFORMATION
  Report Type: Spontaneous
  Country: US (occurrence: US)
  Receive Date: 20140228
  Receipt Date: 20140228
  Transmission Date: 20141002
  Serious: No
  Sender: FDA-Public Use
  Company Number: US-AMGEN-USASP2014005004

PATIENT
  Age: 45 Year
  Sex: Female
  Weight: 70 kg

DRUGS (10)
  1. ENBREL [Suspect]
     Indication: PRODUCT USED FOR UNKNOWN INDICATION
     Dosage: 50 MG, QWK
     Route: 058
  2. PLAQUENIL                          /00072602/ [Concomitant]
     Dosage: 200 MG, UNK
     Route: 048
  3. ARAVA [Concomitant]
     Dosage: 20 MG, UNK
     Route: 048
  4. LISINOPRIL HYDROCHLORTHIAZID [Concomitant]
     Dosage: 10- 12.5
     Route: 048
  5. FISH OIL [Concomitant]
     Dosage: UNK
     Route: 048
  6. METOPROLOL [Concomitant]
     Dosage: 100 MG, UNK
     Route: 048
  7. PRILOSEC                           /00661201/ [Concomitant]
     Dosage: 20 MG, UNK
     Route: 048
  8. BABY ASPIRIN [Concomitant]
     Dosage: 81 MG, UNK
     Route: 048
  9. METFORMIN [Concomitant]
     Dosage: 500 MG, UNK
     Route: 048
  10. VITAMIN D                          /00107901/ [Concomitant]
     Dosage: 400 UNIT, UNK
     Route: 048

REACTIONS (1)
  - Nasopharyngitis [Recovered/Resolved]
